FAERS Safety Report 17727528 (Version 5)
Quarter: 2022Q1

REPORT INFORMATION
  Report Type: Spontaneous
  Country: US (occurrence: US)
  Receive Date: 20200430
  Receipt Date: 20220309
  Transmission Date: 20220423
  Serious: No
  Sender: FDA-Public Use
  Company Number: US-PFIZER INC-2020173030

PATIENT
  Age: 56 Year
  Sex: Female

DRUGS (4)
  1. XELJANZ XR [Suspect]
     Active Substance: TOFACITINIB CITRATE
     Indication: Rheumatoid arthritis
     Dosage: 11 MG, 1X/DAY (ONCE A DAY)
     Route: 048
     Dates: start: 201911, end: 202104
  2. LEFLUNOMIDE [Concomitant]
     Active Substance: LEFLUNOMIDE
     Dosage: UNK
  3. MELOXICAM [Concomitant]
     Active Substance: MELOXICAM
     Dosage: UNK
  4. PREDNISONE [Concomitant]
     Active Substance: PREDNISONE
     Dosage: UNK

REACTIONS (9)
  - Laryngitis [Unknown]
  - Sinusitis [Unknown]
  - Condition aggravated [Unknown]
  - Pain in extremity [Unknown]
  - Peripheral swelling [Unknown]
  - Sensitivity to weather change [Unknown]
  - Pain [Unknown]
  - Multiple allergies [Unknown]
  - Mutism [Unknown]

NARRATIVE: CASE EVENT DATE: 20200413
